FAERS Safety Report 9433477 (Version 1)
Quarter: 2013Q3

REPORT INFORMATION
  Report Type: Spontaneous
  Country: BR (occurrence: BR)
  Receive Date: 20130731
  Receipt Date: 20130731
  Transmission Date: 20140515
  Serious: Yes (Death, Life-Threatening, Other)
  Sender: FDA-Public Use
  Company Number: BR-ROCHE-1254507

PATIENT
  Sex: Male

DRUGS (2)
  1. RITUXIMAB [Suspect]
     Indication: MYELITIS TRANSVERSE
     Route: 065
  2. RITUXIMAB [Suspect]
     Indication: OFF LABEL USE

REACTIONS (5)
  - Myelitis transverse [Fatal]
  - Spinal disorder [Unknown]
  - Acute respiratory failure [Unknown]
  - Hallucination [Unknown]
  - Drug ineffective [Unknown]
